FAERS Safety Report 9892084 (Version 2)
Quarter: 2014Q2

REPORT INFORMATION
  Report Type: Report from Study
  Country: JP (occurrence: JP)
  Receive Date: 20140212
  Receipt Date: 20140407
  Transmission Date: 20141212
  Serious: No
  Sender: FDA-Public Use
  Company Number: JP-GLAXOSMITHKLINE-B0665188A

PATIENT
  Age: 57 Year
  Sex: Female
  Weight: 50 kg

DRUGS (6)
  1. TYKERB [Suspect]
     Indication: BREAST CANCER
     Route: 048
     Dates: start: 20090930, end: 20100224
  2. XELODA [Concomitant]
     Indication: BREAST CANCER
     Route: 048
     Dates: start: 20090930, end: 20091201
  3. GLYCYRON [Concomitant]
     Indication: HEPATIC FUNCTION ABNORMAL
     Route: 048
     Dates: start: 20090415, end: 20091125
  4. OXYCONTIN [Concomitant]
     Indication: HEPATIC FUNCTION ABNORMAL
     Route: 048
     Dates: start: 20090407, end: 20090613
  5. ALDACTONE A [Concomitant]
     Indication: MALIGNANT ASCITES
     Route: 048
     Dates: start: 20090930, end: 20091125
  6. FUROSEMIDE [Concomitant]
     Indication: MALIGNANT ASCITES
     Route: 048
     Dates: start: 20090930, end: 20091125

REACTIONS (1)
  - Fatigue [Not Recovered/Not Resolved]
